FAERS Safety Report 6520617-8 (Version None)
Quarter: 2009Q4

REPORT INFORMATION
  Report Type: 
  Country: None (occurrence: None)
  Receive Date: 20091229
  Receipt Date: 20091217
  Transmission Date: 20100525
  Serious: Yes (Life-Threatening)
  Sender: FDA-Public Use
  Company Number: ZM-BRISTOL-MYERS SQUIBB COMPANY-14857783

PATIENT
  Age: 32 Year
  Sex: Male

DRUGS (8)
  1. EFAVIRENZ [Suspect]
     Indication: HIV INFECTION
     Dosage: INTERRUPTED ON 02NOV2009; 132 DAYS
     Route: 048
     Dates: start: 20090624
  2. TENOFOVIR DISOPROXIL FUMARATE [Suspect]
     Indication: HIV INFECTION
     Dosage: INTERRUPTED ON 02NOV2009; 132 DAYS
     Route: 048
     Dates: start: 20090624
  3. EMTRICITABINE [Suspect]
     Indication: HIV INFECTION
     Dosage: INTERRUPTED ON 02NOV2009; 132 DAYS
     Route: 048
     Dates: start: 20090624
  4. ETHAMBUTOL HYDROCHLORIDE [Suspect]
     Indication: TUBERCULOSIS
     Dosage: CONTINUATION PHASE FROM 07-SEP-2009
     Route: 048
     Dates: start: 20090618, end: 20090906
  5. ISONIAZID [Suspect]
     Indication: TUBERCULOSIS
     Route: 048
     Dates: start: 20090618
  6. PYRAZINAMIDE [Suspect]
     Indication: TUBERCULOSIS
     Dosage: CONTINUATION PHASE FROM 07-SEP-2009
     Route: 048
     Dates: start: 20090618, end: 20090906
  7. RIFAMPIN [Suspect]
     Indication: TUBERCULOSIS
     Route: 048
     Dates: start: 20090618
  8. SULFAMETHOXAZOLE AND TRIMETHOPRIM [Concomitant]

REACTIONS (2)
  - HEPATOTOXICITY [None]
  - NEUTROPENIA [None]
